FAERS Safety Report 4536555-6 (Version None)
Quarter: 2004Q4

REPORT INFORMATION
  Report Type: 
  Country: None (occurrence: None)
  Receive Date: 20041220
  Receipt Date: 20041202
  Transmission Date: 20050328
  Serious: Yes (Hospitalization)
  Sender: FDA-Public Use
  Company Number: 2004BI000880

PATIENT
  Age: 56 Year
  Sex: Female
  Weight: 73.9363 kg

DRUGS (9)
  1. AVONEX [Suspect]
     Indication: MULTIPLE SCLEROSIS
     Dosage: 30 UG;QW;IM
     Route: 030
  2. LORAZEPAM [Concomitant]
  3. NEURONTIN [Concomitant]
  4. SPIRONOLACTONE [Concomitant]
  5. DURAGESIC [Concomitant]
  6. OXYCODONE HCL [Concomitant]
  7. METHADONE HCL [Concomitant]
  8. RHINOCORT [Concomitant]
  9. MEDICATION (NOS) [Concomitant]

REACTIONS (6)
  - CALCULUS BLADDER [None]
  - HYPERTENSION [None]
  - NASOPHARYNGITIS [None]
  - NEPHROLITHIASIS [None]
  - ORAL POLYPECTOMY [None]
  - PNEUMONIA [None]
